FAERS Safety Report 5267579-1 (Version None)
Quarter: 2007Q1

REPORT INFORMATION
  Report Type: 
  Country: None (occurrence: None)
  Receive Date: 20070316
  Receipt Date: 20070314
  Transmission Date: 20070707
  Serious: Yes (Death)
  Sender: FDA-Public Use
  Company Number: JP-BOEHRINGER INGELHEIM PHARMACEUTICALS, INC.-2007-BP-03631YA

PATIENT
  Sex: Male

DRUGS (2)
  1. TAMSULOSIN HCL [Suspect]
     Indication: BENIGN PROSTATIC HYPERPLASIA
     Route: 048
  2. ABILIFY [Suspect]
     Route: 048

REACTIONS (1)
  - SUDDEN DEATH [None]
